FAERS Safety Report 22599008 (Version 1)
Quarter: 2023Q2

REPORT INFORMATION
  Report Type: Other
  Country: GB (occurrence: GB)
  Receive Date: 20230614
  Receipt Date: 20230614
  Transmission Date: 20230721
  Serious: Yes (Life-Threatening, Other)
  Sender: FDA-Public Use
  Company Number: None

PATIENT
  Age: 84 Year
  Sex: Male
  Weight: 108 kg

DRUGS (1)
  1. PREDNISOLONE [Suspect]
     Active Substance: PREDNISOLONE
     Indication: Dyspnoea
     Dosage: UNK
     Route: 065

REACTIONS (3)
  - Medication error [Unknown]
  - Depression [None]
  - Off label use [Unknown]

NARRATIVE: CASE EVENT DATE: 20230331
